FAERS Safety Report 7569584-9 (Version None)
Quarter: 2011Q2

REPORT INFORMATION
  Report Type: 
  Country: None (occurrence: None)
  Receive Date: 20110617
  Receipt Date: 20110603
  Transmission Date: 20111010
  Serious: Yes (Hospitalization, Other)
  Sender: FDA-Public Use
  Company Number: EU-2011-10093

PATIENT
  Age: 64 Year
  Sex: Male

DRUGS (12)
  1. POTASSIUM BICARBONATE (POTASSIUM BICARBONATE) [Concomitant]
  2. PYRIDOXINE (PYRIDOXINE) [Concomitant]
  3. ASCORBIC ACID [Concomitant]
  4. SERETIDE (FLUTICASONE PROPIONATE, SALMETEROL XINAFOATE) [Concomitant]
  5. ALBUTEROL SULFATE [Concomitant]
  6. CILOSTAZOL [Suspect]
     Indication: INTERMITTENT CLAUDICATION
     Dosage: 200 MG MILLIGRAM(S), DAILY DOSE, ORAL
     Route: 048
     Dates: start: 20100202, end: 20110516
  7. METFORMIN HCL [Suspect]
     Indication: TYPE 2 DIABETES MELLITUS
     Dosage: 1.7 G GRAM(S), DAILY DOSE, ORAL
     Route: 048
     Dates: end: 20110516
  8. ETHAMBUTOL (ETHAMBUTOL) [Concomitant]
  9. INSULIN (INSULIN) [Concomitant]
  10. SPIRIVA [Concomitant]
  11. AMLODIPINE [Concomitant]
  12. CALCIUM SANDOZ + D (CALCIUM CARBONATE, CALCIUM LACTATE GLUCONATE, COLE [Concomitant]

REACTIONS (3)
  - RENAL FAILURE ACUTE [None]
  - TUBERCULOSIS [None]
  - LACTIC ACIDOSIS [None]
